FAERS Safety Report 16471309 (Version 2)
Quarter: 2021Q3

REPORT INFORMATION
  Report Type: Spontaneous
  Country: US (occurrence: US)
  Receive Date: 20190624
  Receipt Date: 20210705
  Transmission Date: 20211014
  Serious: No
  Sender: FDA-Public Use
  Company Number: US-SA-2019SA170699

PATIENT
  Age: 34 Year
  Sex: Female

DRUGS (3)
  1. DUPIXENT [Suspect]
     Active Substance: DUPILUMAB
     Dosage: 300 MG, QOW
     Route: 058
     Dates: start: 201903
  2. DUPIXENT [Suspect]
     Active Substance: DUPILUMAB
     Indication: ASTHMA
     Dosage: 2 DF, 1X
     Dates: start: 201902, end: 201902
  3. BREO ELLIPTA [Concomitant]
     Active Substance: FLUTICASONE FUROATE\VILANTEROL TRIFENATATE
     Dosage: UNK

REACTIONS (10)
  - Dry eye [Unknown]
  - Ocular hyperaemia [Not Recovered/Not Resolved]
  - Asthma [Not Recovered/Not Resolved]
  - Eye pain [Unknown]
  - Ocular discomfort [Unknown]
  - Product use issue [Unknown]
  - Therapeutic response decreased [Not Recovered/Not Resolved]
  - Conjunctivitis [Unknown]
  - Eye irritation [Unknown]
  - Eye discharge [Unknown]

NARRATIVE: CASE EVENT DATE: 201903
